FAERS Safety Report 23282344 (Version 1)
Quarter: 2023Q4

REPORT INFORMATION
  Report Type: Spontaneous
  Country: US (occurrence: None)
  Receive Date: 20231208
  Receipt Date: 20231208
  Transmission Date: 20240110
  Serious: Yes (Death)
  Sender: FDA-Public Use
  Company Number: None

PATIENT
  Age: 31 Year
  Sex: Male
  Weight: 72 kg

DRUGS (2)
  1. BRIUMVI [Suspect]
     Active Substance: UBLITUXIMAB-XIIY
  2. CLEMASTINE [Suspect]
     Active Substance: CLEMASTINE

REACTIONS (2)
  - Drug ineffective [None]
  - Completed suicide [None]

NARRATIVE: CASE EVENT DATE: 20230713
